FAERS Safety Report 10585942 (Version 1)
Quarter: 2014Q4

REPORT INFORMATION
  Report Type: Spontaneous
  Country: DE (occurrence: DE)
  Receive Date: 20141114
  Receipt Date: 20141114
  Transmission Date: 20150529
  Serious: Yes (Other)
  Sender: FDA-Public Use
  Company Number: GXKR2014DE004175

PATIENT
  Age: 17 Year
  Sex: Female

DRUGS (1)
  1. CITALOPRAM [Suspect]
     Active Substance: CITALOPRAM HYDROBROMIDE
     Indication: DEPRESSION
     Dosage: 20 MG, QD
     Route: 048
     Dates: start: 201402

REACTIONS (6)
  - Nausea [Unknown]
  - Infection susceptibility increased [Unknown]
  - Dental caries [Unknown]
  - Diarrhoea [Unknown]
  - Vulvovaginal mycotic infection [Unknown]
  - Nasopharyngitis [Unknown]
